FAERS Safety Report 11737660 (Version 1)
Quarter: 2015Q4

REPORT INFORMATION
  Report Type: Spontaneous
  Country: US (occurrence: US)
  Receive Date: 20151110
  Receipt Date: 20151110
  Transmission Date: 20160304
  Serious: No
  Sender: FDA-Public Use
  Company Number: US-ELI_LILLY_AND_COMPANY-US201201000961

PATIENT
  Age: 67 Year
  Sex: Female

DRUGS (4)
  1. FORTEO [Suspect]
     Active Substance: TERIPARATIDE
     Dosage: 20 UG, QD
     Dates: start: 20120707
  2. FORTEO [Suspect]
     Active Substance: TERIPARATIDE
     Indication: OSTEOPOROSIS
     Dosage: 20 UG, QD
     Dates: start: 20111221
  3. FORTEO [Suspect]
     Active Substance: TERIPARATIDE
     Dosage: 20 UG, QD
  4. FORTEO [Suspect]
     Active Substance: TERIPARATIDE
     Dosage: 20 UG, QD
     Dates: end: 20120707

REACTIONS (9)
  - Fall [Recovering/Resolving]
  - Contusion [Unknown]
  - Scratch [Not Recovered/Not Resolved]
  - Muscular weakness [Unknown]
  - Haemorrhage [Unknown]
  - Injection site pain [Unknown]
  - Injection site haemorrhage [Recovering/Resolving]
  - Upper limb fracture [Recovering/Resolving]
  - Injection site injury [Unknown]

NARRATIVE: CASE EVENT DATE: 20120620
